FAERS Safety Report 5578706-0 (Version None)
Quarter: 2007Q4

REPORT INFORMATION
  Report Type: 
  Country: None (occurrence: None)
  Receive Date: 20071227
  Receipt Date: 20071212
  Transmission Date: 20080405
  Serious: Yes (Hospitalization, Other)
  Sender: FDA-Public Use
  Company Number: 2007JP005627

PATIENT
  Age: 24 Year
  Sex: Male

DRUGS (3)
  1. PROGRAF [Suspect]
     Indication: RENAL TRANSPLANT
  2. PREDNISONE [Concomitant]
  3. MYCOPHENOLATE MOFETIL [Concomitant]

REACTIONS (10)
  - BK VIRUS INFECTION [None]
  - CONVULSION [None]
  - DIFFUSE LARGE B-CELL LYMPHOMA RECURRENT [None]
  - GASTROENTERITIS ESCHERICHIA COLI [None]
  - HEPATIC FUNCTION ABNORMAL [None]
  - HISTIOCYTOSIS HAEMATOPHAGIC [None]
  - KAPOSI'S VARICELLIFORM ERUPTION [None]
  - METASTASES TO CENTRAL NERVOUS SYSTEM [None]
  - PLATELET COUNT DECREASED [None]
  - RENAL IMPAIRMENT [None]
